FAERS Safety Report 21562128 (Version 2)
Quarter: 2022Q4

REPORT INFORMATION
  Report Type: Spontaneous
  Country: HR (occurrence: HR)
  Receive Date: 20221107
  Receipt Date: 20221126
  Transmission Date: 20230113
  Serious: Yes (Hospitalization, Other)
  Sender: FDA-Public Use
  Company Number: HR-TEVA-2022-HR-2824377

PATIENT
  Sex: Female

DRUGS (10)
  1. CYCLOSPORINE [Suspect]
     Active Substance: CYCLOSPORINE
     Indication: Focal segmental glomerulosclerosis
     Dosage: DIVIDED INTO TWO DAILY DOSES (TARGETED BLOOD LEVEL OF CSA WAS 100-400 UG/L 12 H AFTER LAST ORAL DOSE
     Route: 048
  2. TACROLIMUS [Suspect]
     Active Substance: TACROLIMUS
     Indication: Focal segmental glomerulosclerosis
     Dosage: IN TWO DAILY DOSES , 0.08 MG/KG
     Route: 048
     Dates: start: 201308
  3. TELMISARTAN [Suspect]
     Active Substance: TELMISARTAN
     Indication: Hypertension
     Dosage: 80 MILLIGRAM DAILY;
     Route: 065
  4. PREDNISONE [Suspect]
     Active Substance: PREDNISONE
     Indication: Focal segmental glomerulosclerosis
     Dosage: 1MG/KG OF BODY WEIGHT
     Route: 065
  5. CYCLOPHOSPHAMIDE [Suspect]
     Active Substance: CYCLOPHOSPHAMIDE
     Indication: Focal segmental glomerulosclerosis
     Dosage: IN TWO DAILY DOSES , 2 MG/KG
     Route: 065
  6. PERINDOPRIL [Suspect]
     Active Substance: PERINDOPRIL
     Indication: Focal segmental glomerulosclerosis
     Route: 065
  7. METHYLPREDNISOLONE [Suspect]
     Active Substance: METHYLPREDNISOLONE
     Indication: Focal segmental glomerulosclerosis
     Dosage: INITIAL DOSE NOT STATED , 0.5 MG/KG
     Route: 065
  8. SIMVASTATIN [Concomitant]
     Active Substance: SIMVASTATIN
     Indication: Hyperlipidaemia
     Dosage: 80 MILLIGRAM DAILY;
     Route: 065
  9. ALBUMIN HUMAN [Concomitant]
     Active Substance: ALBUMIN HUMAN
     Indication: Focal segmental glomerulosclerosis
     Route: 065
  10. ACYCLOVIR [Concomitant]
     Active Substance: ACYCLOVIR
     Indication: Herpes zoster
     Route: 065

REACTIONS (3)
  - Drug ineffective [Unknown]
  - Leukopenia [Unknown]
  - Herpes zoster [Unknown]
